FAERS Safety Report 11558169 (Version 1)
Quarter: 2015Q3

REPORT INFORMATION
  Report Type: Spontaneous
  Country: KR (occurrence: KR)
  Receive Date: 20150928
  Receipt Date: 20150928
  Transmission Date: 20151125
  Serious: Yes (Other)
  Sender: FDA-Public Use
  Company Number: KR-ROCHE-1637813

PATIENT
  Age: 27 Year
  Sex: Female

DRUGS (1)
  1. TAMIFLU [Suspect]
     Active Substance: OSELTAMIVIR PHOSPHATE
     Indication: INFLUENZA
     Route: 065

REACTIONS (3)
  - Myopia [Recovered/Resolved]
  - Choroidal effusion [Recovered/Resolved]
  - Angle closure glaucoma [Recovering/Resolving]
